FAERS Safety Report 9792449 (Version 1)
Quarter: 2014Q1

REPORT INFORMATION
  Report Type: Spontaneous
  Country: US (occurrence: US)
  Receive Date: 20140102
  Receipt Date: 20140102
  Transmission Date: 20141002
  Serious: No
  Sender: FDA-Public Use
  Company Number: US-BIOGENIDEC-2013BI123900

PATIENT
  Age: 54 Year
  Sex: Female

DRUGS (5)
  1. TECFIDERA [Suspect]
     Indication: MULTIPLE SCLEROSIS
     Route: 048
     Dates: start: 201311, end: 20131218
  2. ADVIL [Concomitant]
  3. BACLOFEN [Concomitant]
  4. KEPPRA [Concomitant]
  5. VITAMIN D [Concomitant]

REACTIONS (1)
  - White blood cell count increased [Unknown]
